FAERS Safety Report 23476314 (Version 1)
Quarter: 2024Q1

REPORT INFORMATION
  Report Type: Report from Study
  Country: US (occurrence: US)
  Receive Date: 20240204
  Receipt Date: 20240204
  Transmission Date: 20240410
  Serious: No
  Sender: FDA-Public Use
  Company Number: US-EXELIXIS-CABO-23062372

PATIENT
  Age: 56 Year
  Sex: Female
  Weight: 49.592 kg

DRUGS (4)
  1. CABOMETYX [Suspect]
     Active Substance: CABOZANTINIB S-MALATE
     Indication: Renal cancer
     Dosage: 40 MG, QD
     Route: 048
     Dates: start: 20230315, end: 202303
  2. CABOMETYX [Suspect]
     Active Substance: CABOZANTINIB S-MALATE
     Dosage: 40 MG, QD
     Route: 048
     Dates: start: 202304
  3. CABOMETYX [Suspect]
     Active Substance: CABOZANTINIB S-MALATE
     Dosage: 40 MG, QD
     Route: 048
  4. HYDROMORPHONE [Concomitant]
     Active Substance: HYDROMORPHONE
     Indication: Spinal fracture

REACTIONS (14)
  - Feeling abnormal [Unknown]
  - Joint stiffness [Unknown]
  - Acne [Unknown]
  - Anxiety [Not Recovered/Not Resolved]
  - Skin lesion [Not Recovered/Not Resolved]
  - Neck pain [Unknown]
  - Adverse drug reaction [Unknown]
  - Drug hypersensitivity [Recovering/Resolving]
  - Skin ulcer [Not Recovered/Not Resolved]
  - Dry mouth [Unknown]
  - Dyspnoea [Not Recovered/Not Resolved]
  - Constipation [Recovered/Resolved]
  - Dizziness [Unknown]
  - Nausea [Unknown]

NARRATIVE: CASE EVENT DATE: 20230301
